FAERS Safety Report 5542358-6 (Version None)
Quarter: 2007Q4

REPORT INFORMATION
  Report Type: 
  Country: None (occurrence: None)
  Receive Date: 20071129
  Receipt Date: 20070424
  Transmission Date: 20080405
  Serious: Yes (Other)
  Sender: FDA-Public Use
  Company Number: US200702001635

PATIENT
  Age: 33 Year
  Sex: Male
  Weight: 79.4 kg

DRUGS (6)
  1. ZYPREXA [Suspect]
     Dosage: 5 MG, 20 MG
     Dates: start: 20010801, end: 20051101
  2. QUETIAPINE [Concomitant]
  3. RISPERIDONE [Concomitant]
  4. CLOMIPRAMINE HCL [Concomitant]
  5. LITHIUM CARBONATE [Concomitant]
  6. HALDOL (HALOPERIDOL DECANOATE) [Concomitant]

REACTIONS (7)
  - BLOOD TRIGLYCERIDES INCREASED [None]
  - DIABETES MELLITUS [None]
  - DIABETIC COMA [None]
  - DIABETIC KETOACIDOSIS [None]
  - HYPERGLYCAEMIA [None]
  - HYPERTENSION [None]
  - PANCREATITIS [None]
